FAERS Safety Report 12149036 (Version 2)
Quarter: 2016Q1

REPORT INFORMATION
  Report Type: Spontaneous
  Country: AT (occurrence: AT)
  Receive Date: 20160304
  Receipt Date: 20160322
  Transmission Date: 20160526
  Serious: Yes (Other)
  Sender: FDA-Public Use
  Company Number: PHHY2016AT027005

PATIENT
  Sex: Female

DRUGS (1)
  1. COSENTYX [Suspect]
     Active Substance: SECUKINUMAB
     Indication: PSORIASIS
     Route: 065

REACTIONS (6)
  - Eczema [Unknown]
  - Off label use [Unknown]
  - Lymphoma [Unknown]
  - Flushing [Unknown]
  - Drug ineffective [Unknown]
  - Mycosis fungoides [Unknown]
